FAERS Safety Report 6372427-2 (Version None)
Quarter: 2009Q3

REPORT INFORMATION
  Report Type: 
  Country: None (occurrence: None)
  Receive Date: 20090924
  Receipt Date: 20080814
  Transmission Date: 20100115
  Serious: Yes (Hospitalization)
  Sender: FDA-Public Use
  Company Number: US-ASTRAZENECA-2008UW16701

PATIENT
  Age: 41 Year
  Sex: Male

DRUGS (3)
  1. SEROQUEL [Suspect]
     Route: 048
  2. RISPERDAL [Suspect]
  3. ALCOHOL [Suspect]

REACTIONS (1)
  - SUICIDE ATTEMPT [None]
